FAERS Safety Report 5316360-3 (Version None)
Quarter: 2007Q2

REPORT INFORMATION
  Report Type: 
  Country: None (occurrence: None)
  Receive Date: 20070430
  Receipt Date: 20070409
  Transmission Date: 20071010
  Serious: Yes (Other)
  Sender: FDA-Public Use
  Company Number: 1022556-2007-00117

PATIENT

DRUGS (1)
  1. UNISOM [Suspect]
     Dosage: 9 TABLETS
     Dates: start: 20070408

REACTIONS (3)
  - FEELING ABNORMAL [None]
  - INCORRECT DOSE ADMINISTERED [None]
  - NERVOUSNESS [None]
